FAERS Safety Report 22134772 (Version 2)
Quarter: 2023Q2

REPORT INFORMATION
  Report Type: Spontaneous
  Country: US (occurrence: US)
  Receive Date: 20230324
  Receipt Date: 20230406
  Transmission Date: 20230722
  Serious: No
  Sender: FDA-Public Use
  Company Number: US-AMGEN-USASP2023048068

PATIENT
  Age: 70 Year
  Sex: Female

DRUGS (2)
  1. REPATHA [Suspect]
     Active Substance: EVOLOCUMAB
     Indication: Blood cholesterol increased
     Dosage: 140 MILLIGRAM, Q2WK
     Route: 058
     Dates: start: 20220623
  2. EZETIMIBE [Concomitant]
     Active Substance: EZETIMIBE
     Dosage: UNK UNK, QD
     Route: 065

REACTIONS (3)
  - Device difficult to use [Unknown]
  - Wrong technique in product usage process [Unknown]
  - Herpes zoster [Unknown]

NARRATIVE: CASE EVENT DATE: 20230316
